APPROVED DRUG PRODUCT: AMOXICILLIN AND CLAVULANATE POTASSIUM
Active Ingredient: AMOXICILLIN; CLAVULANATE POTASSIUM
Strength: 600MG/5ML;EQ 42.9MG BASE/5ML
Dosage Form/Route: FOR SUSPENSION;ORAL
Application: A065373 | Product #001 | TE Code: AB
Applicant: HIKMA PHARMACEUTICALS
Approved: Nov 9, 2007 | RLD: No | RS: No | Type: RX